FAERS Safety Report 8423328-7 (Version None)
Quarter: 2012Q2

REPORT INFORMATION
  Report Type: 
  Country: None (occurrence: None)
  Receive Date: 20120608
  Receipt Date: 20120528
  Transmission Date: 20120825
  Serious: Yes (Hospitalization)
  Sender: FDA-Public Use
  Company Number: JP-PFIZER INC-2011262583

PATIENT
  Age: 70 Year
  Sex: Female

DRUGS (9)
  1. CELEBREX [Suspect]
     Indication: ARTHRALGIA
     Dosage: 100 MG, 2X/DAY
     Route: 048
     Dates: start: 20110815, end: 20110916
  2. KINSHIGAN [Suspect]
     Indication: CONSTIPATION
     Dosage: UNK
     Route: 048
     Dates: start: 20110801
  3. RISPERDAL [Concomitant]
     Route: 048
  4. LEVOTHYROXINE SODIUM [Concomitant]
     Route: 048
  5. RHYTHMY [Concomitant]
     Route: 048
  6. GOSHAJINKIGAN [Suspect]
     Indication: PRODUCT USED FOR UNKNOWN INDICATION
     Dosage: 2.5 G, 3X/DAY
     Route: 048
     Dates: start: 20110819, end: 20110916
  7. AMLODIPINE [Concomitant]
  8. INDOMETHACIN [Concomitant]
     Route: 061
  9. HALCION [Concomitant]
     Route: 048

REACTIONS (2)
  - HEPATITIS [None]
  - LIVER DISORDER [None]
